FAERS Safety Report 9044244 (Version 1)
Quarter: 2013Q1

REPORT INFORMATION
  Report Type: Report from Study
  Country: US (occurrence: US)
  Receive Date: 20130131
  Receipt Date: 20130131
  Transmission Date: 20140127
  Serious: No
  Sender: FDA-Public Use
  Company Number: US-ABBOTT-12P-163-0988295-00

PATIENT
  Age: 57 Year
  Sex: Female

DRUGS (4)
  1. HUMIRA [Suspect]
     Indication: CROHN^S DISEASE
     Dates: start: 20120822, end: 20120822
  2. HUMIRA [Suspect]
     Dates: start: 20120905, end: 20120905
  3. HUMIRA [Suspect]
  4. COBALESE XR-5-1 [Concomitant]
     Indication: DIABETES MELLITUS
     Dosage: 1 PILL DAILY

REACTIONS (2)
  - Incorrect dose administered [Not Recovered/Not Resolved]
  - Abdominal pain [Not Recovered/Not Resolved]
